FAERS Safety Report 5714411-5 (Version None)
Quarter: 2008Q2

REPORT INFORMATION
  Report Type: 
  Country: None (occurrence: None)
  Receive Date: 20080423
  Receipt Date: 20010615
  Transmission Date: 20081010
  Serious: Yes (Death, Hospitalization)
  Sender: FDA-Public Use
  Company Number: US-ROCHE-262408

PATIENT
  Sex: Male
  Weight: 77.1 kg

DRUGS (6)
  1. CAPECITABINE [Suspect]
     Indication: PROSTATE CANCER
     Dosage: TWO WEEKS TREATMENT, ONE WEEKS REST.
     Route: 048
     Dates: start: 20010403, end: 20010403
  2. CAPECITABINE [Suspect]
     Dosage: TWO WEEKS TREATMENT, ONE WEEKS REST.
     Route: 048
     Dates: start: 20010424
  3. PYRIDOXINE [Concomitant]
     Route: 048
  4. PROMETHAZINE [Concomitant]
     Dosage: EVERY 6 P FNA
     Route: 048
     Dates: start: 20010403, end: 20010403
  5. LOTION NOS [Concomitant]
     Dosage: MOISTURISING LOTION.
     Route: 061
     Dates: start: 20010403, end: 20010403
  6. LOPERAMIDE HCL [Concomitant]
     Dosage: 1 DOSE PER 6 HOURS IF NEEDED
     Route: 048
     Dates: start: 20010402, end: 20010403

REACTIONS (3)
  - DEATH [None]
  - NEOPLASM PROGRESSION [None]
  - PNEUMONIA [None]
